FAERS Safety Report 11351244 (Version 1)
Quarter: 2015Q3

REPORT INFORMATION
  Report Type: Spontaneous
  Country: US (occurrence: US)
  Receive Date: 20150807
  Receipt Date: 20150807
  Transmission Date: 20151125
  Serious: No
  Sender: FDA-Public Use
  Company Number: US-JNJFOC-20140913282

PATIENT
  Sex: Male
  Weight: 80 kg

DRUGS (3)
  1. MENS ROGAINE EXTRA STRENGTH [Suspect]
     Active Substance: MINOXIDIL
     Route: 061
  2. AVODART [Concomitant]
     Active Substance: DUTASTERIDE
     Indication: ALOPECIA
     Route: 065
  3. MENS ROGAINE EXTRA STRENGTH [Suspect]
     Active Substance: MINOXIDIL
     Indication: ALOPECIA
     Dosage: 1/2 CAPFUL
     Route: 061
     Dates: end: 20140911

REACTIONS (2)
  - Skin burning sensation [Not Recovered/Not Resolved]
  - Pruritus [Not Recovered/Not Resolved]
